FAERS Safety Report 10515921 (Version 1)
Quarter: 2014Q4

REPORT INFORMATION
  Report Type: Report from Study
  Country: US (occurrence: US)
  Receive Date: 20141014
  Receipt Date: 20141014
  Transmission Date: 20150528
  Serious: Yes (Other)
  Sender: FDA-Public Use
  Company Number: US-ALEXION-A201002367

PATIENT

DRUGS (1)
  1. SOLIRIS [Suspect]
     Active Substance: ECULIZUMAB
     Indication: PAROXYSMAL NOCTURNAL HAEMOGLOBINURIA

REACTIONS (7)
  - Fatigue [Unknown]
  - Haemoglobinuria [Unknown]
  - Dysphagia [Unknown]
  - Gastroenteritis viral [Recovered/Resolved]
  - Blood count abnormal [Unknown]
  - Quality of life decreased [Unknown]
  - Pneumonia [Recovered/Resolved]
